FAERS Safety Report 9728267 (Version 1)
Quarter: 2013Q4

REPORT INFORMATION
  Report Type: Spontaneous
  Country: US (occurrence: None)
  Receive Date: 20131203
  Receipt Date: 20131203
  Transmission Date: 20140711
  Serious: Yes (Death)
  Sender: FDA-Public Use
  Company Number: None

PATIENT
  Age: 76 Year
  Sex: Female
  Weight: 69.85 kg

DRUGS (12)
  1. MORPHINE SULPHATE [Suspect]
     Indication: BACK PAIN
     Dosage: 4 MG, ONE TIME, INTRAVENOUS
     Route: 042
     Dates: start: 20131116, end: 20131116
  2. ONDANSETRON 40 MG/20ML [Suspect]
     Indication: BACK PAIN
     Dosage: 4 MG, ONE TIME, INTRAVENOUS
     Route: 042
     Dates: start: 20131116, end: 20131116
  3. NSS 1 LITER [Concomitant]
  4. ASA 81 MG [Concomitant]
  5. COREG CR 80MG [Concomitant]
  6. DIOVAN 160 MG [Concomitant]
  7. GLIPIZIDE 5 MG [Concomitant]
  8. HUMULIN N [Concomitant]
  9. JANUVIA [Concomitant]
  10. LEVOXYL 88 MCG [Concomitant]
  11. VICODIN [Concomitant]
  12. VIT D2 [Concomitant]

REACTIONS (5)
  - Somnolence [None]
  - Unresponsive to stimuli [None]
  - Blood pressure decreased [None]
  - Heart rate increased [None]
  - Cardio-respiratory arrest [None]
